FAERS Safety Report 16068543 (Version 1)
Quarter: 2019Q1

REPORT INFORMATION
  Report Type: Spontaneous
  Country: US (occurrence: US)
  Receive Date: 20190313
  Receipt Date: 20190313
  Transmission Date: 20190418
  Serious: Yes (Other)
  Sender: FDA-Public Use
  Company Number: US-VIFOR (INTERNATIONAL) INC.-VIT-2019-02127

PATIENT
  Sex: Female

DRUGS (3)
  1. VELTASSA [Suspect]
     Active Substance: PATIROMER
     Indication: BLOOD POTASSIUM
     Route: 048
     Dates: start: 201901
  2. VELTASSA [Suspect]
     Active Substance: PATIROMER
     Dosage: TWO PACKETS IN THE MORNING AND ONE AT NIGHT
     Route: 048
     Dates: start: 2019, end: 20190304
  3. INSULIN [Concomitant]
     Active Substance: INSULIN NOS

REACTIONS (4)
  - Cataract [Unknown]
  - Product dose omission [Unknown]
  - Blood potassium increased [Unknown]
  - Off label use [Unknown]

NARRATIVE: CASE EVENT DATE: 2019
